FAERS Safety Report 12635194 (Version 18)
Quarter: 2017Q3

REPORT INFORMATION
  Report Type: Report from Study
  Country: US (occurrence: US)
  Receive Date: 20160809
  Receipt Date: 20170921
  Transmission Date: 20171127
  Serious: Yes (Hospitalization)
  Sender: FDA-Public Use
  Company Number: US-JNJFOC-20160803796

PATIENT
  Age: 13 Year
  Sex: Female
  Weight: 45.9 kg

DRUGS (2)
  1. REMICADE [Suspect]
     Active Substance: INFLIXIMAB
     Indication: INFLAMMATORY BOWEL DISEASE
     Route: 042
     Dates: start: 20140912, end: 20160105
  2. HUMIRA [Suspect]
     Active Substance: ADALIMUMAB
     Indication: PRODUCT USED FOR UNKNOWN INDICATION
     Route: 065
     Dates: start: 20160204

REACTIONS (1)
  - Microcytic anaemia [Recovered/Resolved]

NARRATIVE: CASE EVENT DATE: 20160719
